FAERS Safety Report 5764825-2 (Version None)
Quarter: 2008Q2

REPORT INFORMATION
  Report Type: 
  Country: None (occurrence: None)
  Receive Date: 20080602
  Receipt Date: 20070823
  Transmission Date: 20081010
  Serious: Yes (Other)
  Sender: FDA-Public Use
  Company Number: WAES 0708USA04604

PATIENT
  Sex: Female
  Weight: 72.1219 kg

DRUGS (1)
  1. EMEND [Suspect]
     Indication: PROPHYLAXIS OF NAUSEA AND VOMITING
     Dosage: 125 MG/1X/PO ; 80 MG/DAILY/PO
     Route: 048

REACTIONS (2)
  - DIARRHOEA [None]
  - GASTROENTERITIS VIRAL [None]
